FAERS Safety Report 5522858-5 (Version None)
Quarter: 2007Q4

REPORT INFORMATION
  Report Type: 
  Country: None (occurrence: None)
  Receive Date: 20071116
  Receipt Date: 20071107
  Transmission Date: 20080405
  Serious: Yes (Death)
  Sender: FDA-Public Use
  Company Number: 2007AL004719

PATIENT
  Age: 68 Year
  Sex: Female
  Weight: 63.5036 kg

DRUGS (3)
  1. GABAPENTIN [Suspect]
  2. AMBIEN CR [Concomitant]
  3. ACETAMINOPHEN AND HYDROCODONE BITARTRATE [Concomitant]

REACTIONS (4)
  - ACCIDENTAL DEATH [None]
  - CARDIAC FAILURE [None]
  - HYPERTHERMIA MALIGNANT [None]
  - NERVOUS SYSTEM DISORDER [None]
